FAERS Safety Report 7812138-7 (Version None)
Quarter: 2011Q4

REPORT INFORMATION
  Report Type: 
  Country: None (occurrence: None)
  Receive Date: 20111013
  Receipt Date: 20111005
  Transmission Date: 20120403
  Serious: Yes (Hospitalization)
  Sender: FDA-Public Use
  Company Number: CH-ELI_LILLY_AND_COMPANY-CH201110001933

PATIENT
  Age: 53 Year
  Sex: Male

DRUGS (8)
  1. METFORMIN HCL [Concomitant]
     Dosage: 200 MG, QD
     Route: 048
  2. ENALAPRIL MALEATE [Concomitant]
     Dosage: 20 MG, QD
     Route: 048
  3. GLIMEPIRIDE [Concomitant]
     Dosage: UNK
  4. EFFIENT [Suspect]
     Dosage: 100 MG, QD
     Route: 048
  5. ACETYLSALICYLIC ACID [Concomitant]
     Dosage: 100 MG, QD
     Route: 048
  6. ATENOLOL [Concomitant]
     Dosage: 50 MG, QD
     Route: 048
  7. AMLODIPINE BESYLATE [Concomitant]
     Dosage: 10 MG, QD
     Route: 048
  8. ATORVASTATIN CALCIUM [Concomitant]
     Dosage: 80 MG, QD
     Route: 048

REACTIONS (5)
  - ANAEMIA [None]
  - DYSPNOEA EXERTIONAL [None]
  - GASTROINTESTINAL HAEMORRHAGE [None]
  - GASTRIC MUCOSAL LESION [None]
  - GASTRITIS [None]
